FAERS Safety Report 7379159-2 (Version None)
Quarter: 2011Q1

REPORT INFORMATION
  Report Type: 
  Country: None (occurrence: None)
  Receive Date: 20110328
  Receipt Date: 20110323
  Transmission Date: 20110831
  Serious: Yes (Death)
  Sender: FDA-Public Use
  Company Number: PHHY2011JP24181

PATIENT
  Sex: Female
  Weight: 56 kg

DRUGS (8)
  1. NEORAL [Suspect]
     Indication: RENAL TRANSPLANT
     Dosage: 300 MG, UNK
     Route: 048
     Dates: start: 20050721, end: 20050928
  2. SIMULECT [Suspect]
     Indication: RENAL TRANSPLANT
     Dosage: 20 MG, ONCE/SINGLE
     Route: 042
     Dates: start: 20050719
  3. CELLCEPT [Suspect]
     Indication: RENAL TRANSPLANT
     Dosage: 1500 MG, UNK
     Route: 048
     Dates: start: 20050721, end: 20050819
  4. PREDONINE [Concomitant]
     Indication: RENAL TRANSPLANT
     Dosage: UNK
     Route: 042
     Dates: start: 20050719, end: 20050721
  5. MEDROL [Suspect]
     Indication: RENAL TRANSPLANT
     Dosage: 60 MG, UNK
     Route: 048
     Dates: start: 20050722, end: 20050930
  6. SOLU-MEDROL [Concomitant]
     Indication: RENAL TRANSPLANT
     Dosage: 500 MG, UNK
     Route: 048
     Dates: start: 20050719, end: 20050719
  7. SANDIMMUNE [Concomitant]
     Indication: RENAL TRANSPLANT
     Dosage: 110 MG, UNK
     Route: 042
     Dates: start: 20050719, end: 20050720
  8. SIMULECT [Suspect]
     Dosage: 20 MG, ONCE/SINGLE
     Route: 042
     Dates: start: 20050723

REACTIONS (5)
  - PERITONITIS [None]
  - STAPHYLOCOCCAL SEPSIS [None]
  - LARGE INTESTINE PERFORATION [None]
  - ILEUS PARALYTIC [None]
  - WOUND INFECTION [None]
